FAERS Safety Report 10650090 (Version 1)
Quarter: 2014Q4

REPORT INFORMATION
  Report Type: Spontaneous
  Country: FR (occurrence: FR)
  Receive Date: 20141212
  Receipt Date: 20141212
  Transmission Date: 20150529
  Serious: Yes (Hospitalization)
  Sender: FDA-Public Use
  Company Number: FR-ASTRAZENECA-2014SE94111

PATIENT
  Age: 24350 Day
  Sex: Male

DRUGS (8)
  1. DEPAKOTE [Concomitant]
     Active Substance: DIVALPROEX SODIUM
  2. AMLOR [Concomitant]
     Active Substance: AMLODIPINE BESYLATE
  3. CRESTOR [Concomitant]
     Active Substance: ROSUVASTATIN CALCIUM
     Route: 048
  4. VITAMIN D3 [Concomitant]
     Active Substance: CHOLECALCIFEROL
  5. KARDEGIC [Concomitant]
     Active Substance: ASPIRIN LYSINE
  6. MICARDIS [Concomitant]
     Active Substance: TELMISARTAN
  7. CALCIUM [Concomitant]
     Active Substance: CALCIUM
  8. INEXIUM [Suspect]
     Active Substance: ESOMEPRAZOLE
     Route: 048
     Dates: start: 2010, end: 20140911

REACTIONS (10)
  - Hypomagnesaemia [Recovered/Resolved]
  - Vomiting [Recovered/Resolved]
  - Muscle spasms [Recovered/Resolved]
  - Mania [Unknown]
  - Nausea [Recovered/Resolved]
  - Hypocalcaemia [Recovered/Resolved]
  - Dizziness [Unknown]
  - Tremor [Recovered/Resolved]
  - Asthenia [Unknown]
  - Trousseau^s sign [Unknown]

NARRATIVE: CASE EVENT DATE: 201308
